FAERS Safety Report 6013706-8 (Version None)
Quarter: 2008Q4

REPORT INFORMATION
  Report Type: 
  Country: None (occurrence: None)
  Receive Date: 20081219
  Receipt Date: 20081211
  Transmission Date: 20090506
  Serious: Yes (Other)
  Sender: FDA-Public Use
  Company Number: A0759691A

PATIENT
  Age: 77 Year
  Sex: Male
  Weight: 72 kg

DRUGS (6)
  1. ROSIGLITAZONE [Suspect]
     Dosage: 4MG PER DAY
     Route: 048
     Dates: start: 20080523
  2. CIALIS [Concomitant]
     Route: 048
     Dates: start: 20061001, end: 20081208
  3. ARICEPT [Concomitant]
  4. PANFUREX [Concomitant]
     Dates: start: 20060101
  5. PANTOPRAZOLE SODIUM [Concomitant]
     Dates: start: 20060101
  6. LEVOTHYROX [Concomitant]
     Dates: start: 20020101

REACTIONS (1)
  - OPTIC NEURITIS [None]
